FAERS Safety Report 15899521 (Version 2)
Quarter: 2019Q2

REPORT INFORMATION
  Report Type: Spontaneous
  Country: US (occurrence: US)
  Receive Date: 20190201
  Receipt Date: 20190522
  Transmission Date: 20190711
  Serious: Yes (Hospitalization)
  Sender: FDA-Public Use
  Company Number: US-VERTEX PHARMACEUTICALS-2019-000732

PATIENT
  Age: 18 Year
  Sex: Male

DRUGS (13)
  1. CAYSTON [Concomitant]
     Active Substance: AZTREONAM
  2. ALBUTEROL                          /00139501/ [Concomitant]
     Active Substance: ALBUTEROL
  3. PULMOZYME [Concomitant]
     Active Substance: DORNASE ALFA
  4. VENTOLIN [Concomitant]
     Active Substance: ALBUTEROL SULFATE
  5. SODIUM CHLORIDE. [Concomitant]
     Active Substance: SODIUM CHLORIDE
  6. LORATADINE. [Concomitant]
     Active Substance: LORATADINE
  7. FLUTICASONE. [Concomitant]
     Active Substance: FLUTICASONE
  8. LANSOPRAZOLE. [Concomitant]
     Active Substance: LANSOPRAZOLE
  9. AMOXICILLIN. [Concomitant]
     Active Substance: AMOXICILLIN
  10. CREON [Concomitant]
     Active Substance: PANCRELIPASE AMYLASE\PANCRELIPASE LIPASE\PANCRELIPASE PROTEASE
  11. BETHKIS [Concomitant]
     Active Substance: TOBRAMYCIN
  12. ORKAMBI [Suspect]
     Active Substance: IVACAFTOR\LUMACAFTOR
     Indication: CYSTIC FIBROSIS
     Dosage: 400/250 MG, BID
     Route: 048
     Dates: start: 20151128
  13. OSELTAMIVIR [Concomitant]
     Active Substance: OSELTAMIVIR

REACTIONS (2)
  - Dehydration [Unknown]
  - Distal intestinal obstruction syndrome [Unknown]

NARRATIVE: CASE EVENT DATE: 20190115
